FAERS Safety Report 9336327 (Version 1)
Quarter: 2013Q2

REPORT INFORMATION
  Report Type: Spontaneous
  Country: GB (occurrence: GB)
  Receive Date: 20130607
  Receipt Date: 20130607
  Transmission Date: 20140414
  Serious: Yes (Other)
  Sender: FDA-Public Use
  Company Number: GB-JNJFOC-20130600253

PATIENT
  Age: 65 Year
  Sex: Male

DRUGS (2)
  1. SIMPONI [Suspect]
     Indication: PRODUCT USED FOR UNKNOWN INDICATION
     Route: 058
     Dates: start: 20130516
  2. SIMPONI [Suspect]
     Indication: PRODUCT USED FOR UNKNOWN INDICATION
     Route: 058

REACTIONS (7)
  - Weight decreased [Unknown]
  - Blood urine present [Unknown]
  - Protein urine present [Unknown]
  - Tongue ulceration [Unknown]
  - Thirst [Unknown]
  - Swollen tongue [Recovered/Resolved]
  - Adverse drug reaction [Unknown]
